FAERS Safety Report 22945001 (Version 4)
Quarter: 2024Q1

REPORT INFORMATION
  Report Type: Spontaneous
  Country: US (occurrence: US)
  Receive Date: 20230914
  Receipt Date: 20240105
  Transmission Date: 20240410
  Serious: No
  Sender: FDA-Public Use
  Company Number: US-PFIZER INC-PV202300017516

PATIENT
  Age: 77 Year
  Sex: Female
  Weight: 83.9 kg

DRUGS (2)
  1. IBRANCE [Suspect]
     Active Substance: PALBOCICLIB
     Indication: Breast cancer metastatic
     Dosage: 100 MG, CYCLIC (1 TAB D1-D21 FOLLOWED BY 7 DAYS OFF)
     Route: 048
     Dates: start: 2015
  2. LETROZOLE [Concomitant]
     Active Substance: LETROZOLE
     Dosage: UNK
     Dates: start: 2015

REACTIONS (2)
  - Malaise [Unknown]
  - Hypoacusis [Unknown]
